FAERS Safety Report 12932058 (Version 2)
Quarter: 2017Q4

REPORT INFORMATION
  Report Type: Report from Study
  Country: US (occurrence: US)
  Receive Date: 20161111
  Receipt Date: 20171222
  Transmission Date: 20180320
  Serious: Yes (Other)
  Sender: FDA-Public Use
  Company Number: US-ROCHE-1852233

PATIENT
  Sex: Male

DRUGS (26)
  1. AMLODIPINE [Concomitant]
     Active Substance: AMLODIPINE BESYLATE
  2. FEXOFENADINE [Concomitant]
     Active Substance: FEXOFENADINE\FEXOFENADINE HYDROCHLORIDE
  3. EMEND [Concomitant]
     Active Substance: APREPITANT
     Route: 042
  4. DOXORUBICIN [Concomitant]
     Active Substance: DOXORUBICIN
     Route: 042
  5. ALOXI [Concomitant]
     Active Substance: PALONOSETRON HYDROCHLORIDE
     Route: 042
  6. FLUCONAZOLE/SECNIDAZOLE [Concomitant]
     Route: 048
  7. RITUXAN [Suspect]
     Active Substance: RITUXIMAB
     Dosage: FOLLOWED BY MONTHLY 7, AND THEN EVRY 2 MONTHS
     Route: 042
  8. SUTENT [Suspect]
     Active Substance: SUNITINIB MALATE
     Indication: METASTATIC RENAL CELL CARCINOMA
     Dosage: 4 WEEKS ON AND 2 WEEKS OFF?28 DAYS SUPPLY
     Route: 048
     Dates: start: 201411, end: 201510
  9. ZANTAC [Concomitant]
     Active Substance: RANITIDINE HYDROCHLORIDE
     Route: 042
  10. VYTORIN [Concomitant]
     Active Substance: EZETIMIBE\SIMVASTATIN
     Dosage: 10/40 MG EVERY DAY
     Route: 065
  11. BENICAR [Concomitant]
     Active Substance: OLMESARTAN MEDOXOMIL
  12. BENADRYL [Concomitant]
     Active Substance: DIPHENHYDRAMINE HYDROCHLORIDE
     Route: 042
  13. VINCRISTINE [Concomitant]
     Active Substance: VINCRISTINE
     Route: 042
  14. SUTENT [Suspect]
     Active Substance: SUNITINIB MALATE
     Route: 048
     Dates: end: 20160713
  15. TAMSULOSINE [Concomitant]
     Active Substance: TAMSULOSIN HYDROCHLORIDE
     Dosage: EXTENDED RELEASE
     Route: 065
  16. OXYCODONE HYDROCHLORIDE. [Concomitant]
     Active Substance: OXYCODONE HYDROCHLORIDE
     Route: 048
     Dates: start: 20171109
  17. DECADRON [Concomitant]
     Active Substance: DEXAMETHASONE
     Route: 042
  18. ASA [Concomitant]
     Active Substance: ASPIRIN
  19. TYLENOL [Concomitant]
     Active Substance: ACETAMINOPHEN
     Route: 048
  20. NEULASTA [Concomitant]
     Active Substance: PEGFILGRASTIM
     Route: 065
  21. RITUXAN [Suspect]
     Active Substance: RITUXIMAB
     Indication: PRODUCT USED FOR UNKNOWN INDICATION
     Route: 042
     Dates: end: 201401
  22. CITALOPRAM [Concomitant]
     Active Substance: CITALOPRAM HYDROBROMIDE
  23. SOLU-MEDROL [Concomitant]
     Active Substance: METHYLPREDNISOLONE SODIUM SUCCINATE
     Dosage: 40 MG/L
     Route: 065
  24. PEPCID (CANADA) [Concomitant]
     Route: 042
  25. CYTARABIN [Concomitant]
     Active Substance: CYTARABINE
  26. CYCLOPHOSPHAMIDE. [Concomitant]
     Active Substance: CYCLOPHOSPHAMIDE
     Route: 042

REACTIONS (19)
  - Metastatic renal cell carcinoma [Unknown]
  - Discomfort [Unknown]
  - Overweight [Unknown]
  - White blood cell count decreased [Unknown]
  - Mantle cell lymphoma [Unknown]
  - Oropharyngeal pain [Unknown]
  - Fatigue [Unknown]
  - Pyrexia [Unknown]
  - Dry skin [Unknown]
  - Oral pain [Unknown]
  - Chills [Recovered/Resolved]
  - Malaise [Unknown]
  - Nausea [Unknown]
  - Mucosal inflammation [Unknown]
  - Arthralgia [Unknown]
  - Hypokalaemia [Unknown]
  - Anaemia [Unknown]
  - Dehydration [Unknown]
  - Diarrhoea [Unknown]
